FAERS Safety Report 24031248 (Version 1)
Quarter: 2024Q2

REPORT INFORMATION
  Report Type: Spontaneous
  Country: US (occurrence: US)
  Receive Date: 20240629
  Receipt Date: 20240629
  Transmission Date: 20240716
  Serious: Yes (Death, Life-Threatening, Other)
  Sender: FDA-Public Use
  Company Number: US-AMGEN-USASP2024124284

PATIENT

DRUGS (8)
  1. PREDNISONE [Suspect]
     Active Substance: PREDNISONE
     Indication: Diffuse large B-cell lymphoma
     Dosage: UNK
     Route: 065
  2. PREDNISONE [Suspect]
     Active Substance: PREDNISONE
     Indication: B-cell lymphoma
  3. CYCLOPHOSPHAMIDE [Concomitant]
     Active Substance: CYCLOPHOSPHAMIDE
  4. DOXORUBICIN [Concomitant]
     Active Substance: DOXORUBICIN
  5. VINCRISTINE [Concomitant]
     Active Substance: VINCRISTINE
  6. ETOPOSIDE [Concomitant]
     Active Substance: ETOPOSIDE
  7. IFOSFAMIDE [Concomitant]
     Active Substance: IFOSFAMIDE
  8. CISPLATIN [Concomitant]
     Active Substance: CISPLATIN

REACTIONS (24)
  - Diffuse large B-cell lymphoma [Fatal]
  - Cardiac failure [Fatal]
  - Epistaxis [Fatal]
  - Tumour lysis syndrome [Fatal]
  - Infection [Fatal]
  - Thrombocytopenia [Unknown]
  - Neutropenia [Unknown]
  - Anaemia [Unknown]
  - Haematotoxicity [Unknown]
  - HIV infection [Unknown]
  - Hypokalaemia [Unknown]
  - Sepsis [Unknown]
  - Upper gastrointestinal haemorrhage [Unknown]
  - Acute kidney injury [Unknown]
  - Neuropathy peripheral [Unknown]
  - Ileus [Unknown]
  - Therapy partial responder [Unknown]
  - Toxicity to various agents [Unknown]
  - Off label use [Unknown]
  - Vomiting [Unknown]
  - Hyperglycaemia [Unknown]
  - Diarrhoea [Unknown]
  - Dyspnoea [Unknown]
  - Oedema peripheral [Unknown]
